FAERS Safety Report 9071173 (Version 1)
Quarter: 2013Q1

REPORT INFORMATION
  Report Type: Report from Study
  Country: US (occurrence: US)
  Receive Date: 20130129
  Receipt Date: 20130129
  Transmission Date: 20140127
  Serious: No
  Sender: FDA-Public Use
  Company Number: US-ABBOTT-12P-163-0934175-00

PATIENT
  Age: 36 Year
  Sex: Female

DRUGS (4)
  1. HUMIRA 40 MG/0.8 ML PEN [Suspect]
     Indication: CROHN^S DISEASE
     Dosage: LOADING DOSE
     Dates: start: 20120505
  2. IMURAN [Concomitant]
     Indication: CROHN^S DISEASE
  3. LEXEPRO [Concomitant]
     Indication: ANXIETY
  4. VALTREX [Concomitant]
     Indication: HERPES VIRUS INFECTION

REACTIONS (2)
  - Anxiety [Unknown]
  - Diarrhoea [Not Recovered/Not Resolved]
